FAERS Safety Report 19245743 (Version 1)
Quarter: 2021Q2

REPORT INFORMATION
  Report Type: Spontaneous
  Country: CN (occurrence: CN)
  Receive Date: 20210511
  Receipt Date: 20210511
  Transmission Date: 20210717
  Serious: Yes (Other)
  Sender: FDA-Public Use
  Company Number: CN-BAXTER-2021BAX010130

PATIENT
  Age: 50 Year
  Sex: Female
  Weight: 64 kg

DRUGS (9)
  1. TROPISETRON [Concomitant]
     Active Substance: TROPISETRON
     Indication: PROPHYLAXIS OF NAUSEA AND VOMITING
     Route: 065
     Dates: start: 202103
  2. NAB?PACLITAXEL [Suspect]
     Active Substance: PACLITAXEL
     Indication: BREAST CANCER FEMALE
     Dosage: CYCLE?4, DAY 1
     Route: 065
     Dates: start: 20210325, end: 20210325
  3. ENDOXAN [Suspect]
     Active Substance: CYCLOPHOSPHAMIDE
     Indication: BREAST CANCER FEMALE
     Dosage: CYCLE?4, CYCLOPHOSPHAMIDE 900 MG + SODIUM CHLORIDE 100 ML, D2
     Route: 041
     Dates: start: 20210326, end: 20210326
  4. SODIUM CHLORIDE. [Suspect]
     Active Substance: SODIUM CHLORIDE
     Indication: MEDICATION DILUTION
     Dosage: CYCLES 1?3, SODIUM CHLORIDE + CYCLOPHOSPHAMIDE
     Route: 041
  5. ENDOXAN [Suspect]
     Active Substance: CYCLOPHOSPHAMIDE
     Indication: DISEASE COMPLICATION
     Dosage: CYCLES 1?3, CYCLOPHOSPHAMIDE + SODIUM CHLORIDE
     Route: 041
  6. SODIUM CHLORIDE. [Suspect]
     Active Substance: SODIUM CHLORIDE
     Dosage: CYCLE?4, SODIUM CHLORIDE 100 ML + CYCLOPHOSPHAMIDE 900 MG, D2
     Route: 041
     Dates: start: 20210326, end: 20210326
  7. OMEPRAZOLE. [Concomitant]
     Active Substance: OMEPRAZOLE
     Indication: PROPHYLAXIS
     Route: 065
     Dates: start: 202103
  8. DEXAMETHASONE. [Concomitant]
     Active Substance: DEXAMETHASONE
     Indication: ANTIALLERGIC THERAPY
     Route: 065
     Dates: start: 202103
  9. NAB?PACLITAXEL [Suspect]
     Active Substance: PACLITAXEL
     Indication: DISEASE COMPLICATION
     Dosage: CYCLES 1?3
     Route: 065

REACTIONS (3)
  - Chest discomfort [Recovered/Resolved]
  - Breath holding [Recovered/Resolved]
  - Palpitations [Recovering/Resolving]

NARRATIVE: CASE EVENT DATE: 20210326
